FAERS Safety Report 10476730 (Version 1)
Quarter: 2014Q3

REPORT INFORMATION
  Report Type: Spontaneous
  Country: US (occurrence: US)
  Receive Date: 20140925
  Receipt Date: 20140925
  Transmission Date: 20150326
  Serious: Yes (Death, Other)
  Sender: FDA-Public Use
  Company Number: PHEH2014US019113

PATIENT
  Sex: Female

DRUGS (3)
  1. VERAPAMIL [Concomitant]
     Active Substance: VERAPAMIL HYDROCHLORIDE
  2. PREDNISONE. [Concomitant]
     Active Substance: PREDNISONE
  3. ZOMETA [Suspect]
     Active Substance: ZOLEDRONIC ACID
     Indication: NEOPLASM MALIGNANT
     Dates: start: 2008

REACTIONS (11)
  - Infection [Unknown]
  - Bone pain [Unknown]
  - Osteonecrosis of jaw [Unknown]
  - Jaw fracture [Unknown]
  - Speech disorder [Unknown]
  - Dysphagia [Unknown]
  - Jaw disorder [Unknown]
  - Oral disorder [Unknown]
  - Breast cancer [Fatal]
  - Eating disorder [Unknown]
  - Deformity [Unknown]

NARRATIVE: CASE EVENT DATE: 2008
